FAERS Safety Report 15299479 (Version 2)
Quarter: 2018Q4

REPORT INFORMATION
  Report Type: Spontaneous
  Country: NL (occurrence: NL)
  Receive Date: 20180821
  Receipt Date: 20180928
  Transmission Date: 20190204
  Serious: Yes (Other)
  Sender: FDA-Public Use
  Company Number: NL-TEVA-2018-NL-946830

PATIENT
  Sex: Male

DRUGS (1)
  1. LOSARTANKALIUM/HYDROCHLOORTHIAZIDE 100/12,5 MG TEVA [Suspect]
     Active Substance: HYDROCHLOROTHIAZIDE\LOSARTAN POTASSIUM
     Route: 065

REACTIONS (2)
  - Tongue disorder [Recovered/Resolved]
  - Dementia [Recovered/Resolved]
